APPROVED DRUG PRODUCT: REGLAN
Active Ingredient: METOCLOPRAMIDE HYDROCHLORIDE
Strength: EQ 5MG BASE
Dosage Form/Route: TABLET;ORAL
Application: N017854 | Product #002 | TE Code: AB
Applicant: ANI PHARMACEUTICALS INC
Approved: May 5, 1987 | RLD: Yes | RS: No | Type: RX